FAERS Safety Report 5017407-4 (Version None)
Quarter: 2006Q2

REPORT INFORMATION
  Report Type: 
  Country: None (occurrence: None)
  Receive Date: 20060414
  Receipt Date: 20060224
  Transmission Date: 20061013
  Serious: No
  Sender: FDA-Public Use
  Company Number: 2006SP000936

PATIENT
  Age: 60 Year
  Sex: Male
  Weight: 140.6151 kg

DRUGS (9)
  1. LUNESTA [Suspect]
     Indication: SLEEP APNOEA SYNDROME
     Dosage: 2; 3 MG; HS; ORAL
     Route: 048
     Dates: start: 20051001, end: 20060201
  2. LUNESTA [Suspect]
     Indication: SLEEP APNOEA SYNDROME
     Dosage: 2; 3 MG; HS; ORAL
     Route: 048
     Dates: start: 20060201
  3. NEXIUM [Concomitant]
  4. ZETIA [Concomitant]
  5. METFORMIN HCL [Concomitant]
  6. PIOGLITAZONE HCL [Concomitant]
  7. HYZAAR [Concomitant]
  8. AMLODIPINE [Concomitant]
  9. FLONASE [Concomitant]

REACTIONS (3)
  - ABNORMAL DREAMS [None]
  - MIDDLE INSOMNIA [None]
  - SOMNOLENCE [None]
